FAERS Safety Report 5241937-3 (Version None)
Quarter: 2007Q1

REPORT INFORMATION
  Report Type: 
  Country: None (occurrence: None)
  Receive Date: 20070220
  Receipt Date: 20070213
  Transmission Date: 20070707
  Serious: Yes (Death, Hospitalization)
  Sender: FDA-Public Use
  Company Number: FR-ROXANE LABORATORIES, INC-2007-BP-02103RO

PATIENT
  Age: 63 Year
  Sex: Male
  Weight: 45 kg

DRUGS (2)
  1. DICLOFENAC SODIUM [Suspect]
     Indication: RHEUMATOID ARTHRITIS
     Dosage: 100 MG TID
     Route: 048
  2. OMEPRAZOLE [Concomitant]
     Route: 048

REACTIONS (13)
  - ABDOMINAL PAIN [None]
  - ANAEMIA [None]
  - C-REACTIVE PROTEIN INCREASED [None]
  - CACHEXIA [None]
  - COLITIS [None]
  - COLONIC STENOSIS [None]
  - DIARRHOEA [None]
  - HYPOPROTEINAEMIA [None]
  - PALLOR [None]
  - RENAL IMPAIRMENT [None]
  - RESPIRATORY DISORDER [None]
  - THROMBOCYTHAEMIA [None]
  - WEIGHT DECREASED [None]
